FAERS Safety Report 6855758-9 (Version None)
Quarter: 2010Q3

REPORT INFORMATION
  Report Type: 
  Country: None (occurrence: None)
  Receive Date: 20100719
  Receipt Date: 20100712
  Transmission Date: 20110219
  Serious: Yes (Other)
  Sender: FDA-Public Use
  Company Number: US-ELI_LILLY_AND_COMPANY-US201007002654

PATIENT
  Sex: Female

DRUGS (5)
  1. HUMALOG [Suspect]
     Indication: TYPE 2 DIABETES MELLITUS
     Dosage: 4 U, EACH MORNING
  2. HUMALOG [Suspect]
     Dosage: 8 U, OTHER
  3. HUMALOG [Suspect]
     Dosage: 8 U, EACH EVENING
  4. HUMULIN N [Suspect]
     Indication: TYPE 2 DIABETES MELLITUS
     Dosage: 24 U, EACH EVENING
  5. HUMULIN N [Suspect]
     Dosage: UNK, AS NEEDED

REACTIONS (3)
  - CATARACT [None]
  - RETINAL DETACHMENT [None]
  - VISUAL ACUITY REDUCED [None]
